FAERS Safety Report 10026713 (Version 1)
Quarter: 2014Q1

REPORT INFORMATION
  Report Type: Spontaneous
  Country: FR (occurrence: FR)
  Receive Date: 20140321
  Receipt Date: 20140321
  Transmission Date: 20141002
  Serious: Yes (Hospitalization, Other)
  Sender: FDA-Public Use
  Company Number: FR-009507513-1403FRA005843

PATIENT
  Age: 46 Year
  Sex: Male

DRUGS (9)
  1. NORSET [Suspect]
     Dosage: 1 DF, QD
     Route: 048
     Dates: start: 201312, end: 20131202
  2. NORSET [Suspect]
     Dosage: 1 DF, QD
     Route: 048
     Dates: start: 201401
  3. LEVETIRACETAM [Suspect]
     Dosage: 1 DF, BID
     Route: 048
     Dates: start: 201311
  4. LEVETIRACETAM [Suspect]
     Dosage: 0.5 DF, UNK
     Route: 048
  5. IMOVANE [Suspect]
     Dosage: 1 DF, QD
     Route: 048
     Dates: start: 20131202
  6. NATULAN [Suspect]
     Dosage: 100 MG, QD
     Route: 048
     Dates: start: 20140218, end: 20140221
  7. VINCRISTINE SULFATE [Suspect]
     Dosage: 2 MG, ONCE
     Route: 042
     Dates: start: 20140128, end: 20140128
  8. VINCRISTINE SULFATE [Suspect]
     Dosage: 2 MG, ONCE
     Route: 042
     Dates: start: 20140218, end: 20140218
  9. BELUSTINE [Suspect]
     Dosage: 160 MG, ONCE
     Route: 048
     Dates: start: 20140221, end: 20140221

REACTIONS (1)
  - Suicide attempt [Recovered/Resolved]
